FAERS Safety Report 8505574-7 (Version None)
Quarter: 2012Q3

REPORT INFORMATION
  Report Type: 
  Country: None (occurrence: None)
  Receive Date: 20120712
  Receipt Date: 20120702
  Transmission Date: 20120928
  Serious: Yes (Hospitalization)
  Sender: FDA-Public Use
  Company Number: BE-JNJFOC-20120410888

PATIENT
  Sex: Male

DRUGS (40)
  1. MONUROL [Concomitant]
     Indication: URINARY TRACT INFECTION
     Dosage: ONCE ONLY
     Route: 048
     Dates: start: 20120401, end: 20120401
  2. PIPERACILLIN AND TAZOBACTAM [Concomitant]
     Indication: INFECTION
     Route: 042
     Dates: start: 20120613, end: 20120613
  3. VANCOCIN HYDROCHLORIDE [Concomitant]
     Indication: INFECTION
     Route: 042
     Dates: start: 20120613, end: 20120613
  4. ENOXAPARIN SODIUM [Concomitant]
     Indication: PULMONARY EMBOLISM
     Route: 058
     Dates: start: 20120606, end: 20120614
  5. OMEPRAZOLE (PRISOLEC) [Concomitant]
     Indication: PROPHYLAXIS
     Route: 042
     Dates: start: 20120604, end: 20120606
  6. LYSOMUCIL [Concomitant]
     Indication: BRONCHITIS
     Route: 048
     Dates: start: 20120401, end: 20120401
  7. LITICAN [Concomitant]
     Route: 042
     Dates: start: 20120603, end: 20120606
  8. VANCOCIN HYDROCHLORIDE [Concomitant]
     Route: 042
     Dates: start: 20120609, end: 20120612
  9. ZOMETA [Concomitant]
     Indication: PROSTATE CANCER
     Route: 065
     Dates: start: 20061201
  10. TRAMADOL HCL [Concomitant]
     Indication: PNEUMOTHORAX
     Route: 042
     Dates: start: 20120515, end: 20120520
  11. LITICAN [Concomitant]
     Route: 042
     Dates: start: 20120604, end: 20120607
  12. ZOLPIDEM TATRATE [Concomitant]
     Indication: INSOMNIA
     Route: 048
     Dates: start: 20120605
  13. VANCOCIN HYDROCHLORIDE [Concomitant]
     Route: 042
     Dates: start: 20120607, end: 20120607
  14. CLINDAMYCIN HCL [Concomitant]
     Indication: LUNG INFECTION
     Route: 048
     Dates: start: 20120614
  15. SOLU-CORTEF [Concomitant]
     Indication: LUNG INFECTION
     Route: 042
     Dates: start: 20120605, end: 20120605
  16. ABIRATERONE ACETATE [Suspect]
     Indication: PROSTATE CANCER METASTATIC
     Route: 048
     Dates: start: 20100204
  17. LEVOFLOXACIN [Concomitant]
     Route: 048
     Dates: start: 20120614
  18. ABIRATERONE ACETATE [Suspect]
     Route: 048
  19. PREDNISOLONE [Suspect]
     Indication: PROSTATE CANCER METASTATIC
     Route: 048
     Dates: start: 20100204
  20. CALCIUM AND VITAMIN D3 [Concomitant]
     Indication: PROPHYLAXIS
     Route: 048
     Dates: start: 20110418
  21. DAFALGAN FORTE [Concomitant]
     Indication: CANCER PAIN
     Route: 048
     Dates: start: 20120301
  22. ACETAMINOPHEN [Concomitant]
     Route: 042
     Dates: start: 20120611, end: 20120611
  23. LITICAN [Concomitant]
     Indication: NAUSEA
     Route: 042
     Dates: start: 20120515, end: 20120520
  24. PIPERACILLIN AND TAZOBACTAM [Concomitant]
     Route: 042
     Dates: start: 20120603, end: 20120612
  25. VANCOCIN HYDROCHLORIDE [Concomitant]
     Route: 042
     Dates: start: 20120604, end: 20120606
  26. LEVOFLOXACIN [Concomitant]
     Indication: LUNG INFECTION
     Route: 048
     Dates: start: 20120613, end: 20120613
  27. CLINDAMYCIN HCL [Concomitant]
     Route: 048
     Dates: start: 20120613, end: 20120613
  28. SOLU-CORTEF [Concomitant]
     Route: 042
     Dates: start: 20120606, end: 20120606
  29. ACETAMINOPHEN [Concomitant]
     Route: 042
     Dates: start: 20120514, end: 20120523
  30. AMOXICILLIN [Concomitant]
     Indication: BRONCHITIS
     Route: 048
     Dates: start: 20120401, end: 20120401
  31. LITICAN [Concomitant]
     Indication: VOMITING
     Route: 042
     Dates: start: 20120515, end: 20120520
  32. POTASSIUM CHLORIDE [Concomitant]
     Indication: BLOOD POTASSIUM DECREASED
     Route: 042
     Dates: start: 20120605, end: 20120612
  33. ZOLADEX [Concomitant]
     Indication: HORMONE THERAPY
     Route: 058
     Dates: start: 20061201
  34. RANITIDINE [Concomitant]
     Indication: DYSPEPSIA
     Route: 048
     Dates: start: 20110923
  35. DUOVENT [Concomitant]
     Indication: BRONCHITIS
     Route: 055
     Dates: start: 20120401, end: 20120401
  36. LITICAN [Concomitant]
     Route: 042
     Dates: start: 20120604, end: 20120607
  37. LITICAN [Concomitant]
     Route: 042
     Dates: start: 20120603, end: 20120606
  38. ZOLPIDEM TATRATE [Concomitant]
     Route: 048
     Dates: start: 20120515, end: 20120516
  39. ACETAMINOPHEN [Concomitant]
     Indication: PNEUMOTHORAX
     Route: 042
     Dates: start: 20120606, end: 20120606
  40. VANCOCIN HYDROCHLORIDE [Concomitant]
     Route: 042
     Dates: start: 20120608, end: 20120608

REACTIONS (3)
  - PNEUMOTHORAX [None]
  - MALAISE [None]
  - BACK PAIN [None]
